FAERS Safety Report 9988645 (Version 1)
Quarter: 2014Q1

REPORT INFORMATION
  Report Type: Spontaneous
  Country: US (occurrence: US)
  Receive Date: 20140310
  Receipt Date: 20140310
  Transmission Date: 20141002
  Serious: Yes (Other)
  Sender: FDA-Public Use
  Company Number: US-ROCHE-1361234

PATIENT
  Sex: Male

DRUGS (3)
  1. PEGASYS [Suspect]
     Indication: CHRONIC HEPATITIS C
     Route: 058
     Dates: start: 20140117
  2. RIBASPHERE [Suspect]
     Indication: CHRONIC HEPATITIS C
     Route: 048
     Dates: start: 20140117
  3. SOVALDI [Concomitant]
     Indication: CHRONIC HEPATITIS C
     Route: 048
     Dates: start: 20140117

REACTIONS (1)
  - Neoplasm [Unknown]
